FAERS Safety Report 10683052 (Version 1)
Quarter: 2014Q4

REPORT INFORMATION
  Report Type: Spontaneous
  Country: US (occurrence: None)
  Receive Date: 20141217
  Receipt Date: 20141217
  Transmission Date: 20150529
  Serious: Yes (Hospitalization)
  Sender: FDA-Public Use
  Company Number: TPA2010A04863

PATIENT
  Age: 9 Decade
  Sex: Male

DRUGS (1)
  1. DEXILANT [Suspect]
     Active Substance: DEXLANSOPRAZOLE
     Route: 048
     Dates: start: 201008, end: 201008

REACTIONS (2)
  - Abdominal distension [None]
  - Abdominal pain [None]

NARRATIVE: CASE EVENT DATE: 201008
